FAERS Safety Report 6871562-X (Version None)
Quarter: 2010Q3

REPORT INFORMATION
  Report Type: 
  Country: None (occurrence: None)
  Receive Date: 20100723
  Receipt Date: 20100716
  Transmission Date: 20110219
  Serious: Yes (Other)
  Sender: FDA-Public Use
  Company Number: US-PERRIGO-10US011402

PATIENT
  Age: 64 Year
  Sex: Female
  Weight: 99.773 kg

DRUGS (1)
  1. DIPHENHYDRAMINE HCL [Suspect]
     Indication: PRURITUS GENERALISED
     Dosage: 65 ML, SINGLE
     Route: 048
     Dates: start: 20100716, end: 20100716

REACTIONS (2)
  - ACCIDENTAL OVERDOSE [None]
  - ARRHYTHMIA [None]
